FAERS Safety Report 5230363-9 (Version None)
Quarter: 2007Q1

REPORT INFORMATION
  Report Type: 
  Country: None (occurrence: None)
  Receive Date: 20070206
  Receipt Date: 20070125
  Transmission Date: 20070707
  Serious: Yes (Hospitalization)
  Sender: FDA-Public Use
  Company Number: GB-PFIZER INC-2007007660

PATIENT

DRUGS (2)
  1. LYRICA [Suspect]
     Route: 048
  2. ALL OTHER THERAPEUTIC PRODUCTS [Concomitant]

REACTIONS (4)
  - DYSPHAGIA [None]
  - FRACTURE [None]
  - ILL-DEFINED DISORDER [None]
  - METASTASES TO BONE [None]
